FAERS Safety Report 6766003-7 (Version None)
Quarter: 2010Q2

REPORT INFORMATION
  Report Type: 
  Country: None (occurrence: None)
  Receive Date: 20100611
  Receipt Date: 20100603
  Transmission Date: 20101027
  Serious: Yes (Death)
  Sender: FDA-Public Use
  Company Number: A0810667A

PATIENT
  Age: 54 Year
  Sex: Male
  Weight: 88.2 kg

DRUGS (14)
  1. PAZOPANIB [Suspect]
     Indication: NEOPLASM
     Dosage: 800MG PER DAY
     Route: 048
     Dates: start: 20090926, end: 20091002
  2. OXYCONTIN [Concomitant]
     Indication: PAIN
     Dosage: 60MG THREE TIMES PER DAY
     Route: 048
     Dates: start: 20090921, end: 20091002
  3. LORAZEPAM [Concomitant]
     Dosage: .5MG AS REQUIRED
     Route: 048
     Dates: start: 20090724, end: 20091002
  4. OXYCODONE [Concomitant]
     Indication: PAIN
     Dosage: 5MG AS REQUIRED
     Route: 048
     Dates: start: 20090921, end: 20091002
  5. PROCHLORPERAZINE MALEATE [Concomitant]
     Indication: NAUSEA
     Dosage: 10MG AS REQUIRED
     Route: 048
     Dates: start: 20091002, end: 20091002
  6. PRILOSEC [Concomitant]
     Dosage: 40MG PER DAY
     Route: 048
     Dates: start: 20090826, end: 20091002
  7. AMARYL [Concomitant]
     Dosage: 2MG PER DAY
     Route: 048
     Dates: start: 20090710, end: 20091002
  8. ZOFRAN [Concomitant]
     Dosage: 8MG THREE TIMES PER DAY
     Route: 048
     Dates: start: 20091002, end: 20091002
  9. METFORMIN [Concomitant]
     Dosage: 2000MG PER DAY
     Route: 048
     Dates: start: 20090401, end: 20091002
  10. PROZAC [Concomitant]
     Dosage: 40MG PER DAY
     Route: 048
     Dates: end: 20091002
  11. ASPIRIN [Concomitant]
     Indication: THROMBOSIS
     Dosage: 81MG PER DAY
     Route: 048
     Dates: start: 20081208, end: 20091002
  12. ERLOTINIB [Concomitant]
     Route: 048
     Dates: start: 20090417, end: 20090911
  13. DOCETAXEL [Concomitant]
     Route: 042
     Dates: end: 20090911
  14. ATORVASTATIN [Concomitant]
     Dosage: 40MG PER DAY
     Route: 048
     Dates: start: 20081208, end: 20090403

REACTIONS (2)
  - CARDIAC ARREST [None]
  - VENTRICULAR FIBRILLATION [None]
